FAERS Safety Report 19926790 (Version 1)
Quarter: 2021Q4

REPORT INFORMATION
  Report Type: Report from Study
  Country: MX (occurrence: MX)
  Receive Date: 20211006
  Receipt Date: 20211006
  Transmission Date: 20220303
  Serious: Yes (Hospitalization, Disabling)
  Sender: FDA-Public Use
  Company Number: MX-NOVARTISPH-NVSC2021MX223447

PATIENT
  Age: 68 Year
  Sex: Male

DRUGS (1)
  1. ENTRESTO [Suspect]
     Active Substance: SACUBITRIL\VALSARTAN
     Indication: Cardiac failure
     Dosage: 200 MG (EVERY 2 HRS)
     Route: 048
     Dates: start: 20210510

REACTIONS (5)
  - Gangrene [Unknown]
  - Pneumonia [Unknown]
  - Malaise [Unknown]
  - Pain in extremity [Unknown]
  - Feeling hot [Unknown]

NARRATIVE: CASE EVENT DATE: 20210914
